FAERS Safety Report 14661788 (Version 1)
Quarter: 2018Q1

REPORT INFORMATION
  Report Type: Spontaneous
  Country: FR (occurrence: FR)
  Receive Date: 20180320
  Receipt Date: 20180320
  Transmission Date: 20180509
  Serious: Yes (Hospitalization)
  Sender: FDA-Public Use
  Company Number: FR-B. BRAUN MEDICAL INC.-2044161

PATIENT
  Age: 30 Year
  Sex: Female
  Weight: 110 kg

DRUGS (11)
  1. GENTAMICIN. [Suspect]
     Active Substance: GENTAMICIN
     Route: 042
     Dates: start: 20171101, end: 20171101
  2. BROMAZEPAM [Suspect]
     Active Substance: BROMAZEPAM
     Route: 048
     Dates: start: 20171101, end: 20171101
  3. LEVOCETIRIZINE DIHYDROCHLORIDE. [Suspect]
     Active Substance: LEVOCETIRIZINE DIHYDROCHLORIDE
     Route: 048
     Dates: start: 20171101, end: 20171101
  4. PARACETAMOL [Suspect]
     Active Substance: ACETAMINOPHEN
     Dates: start: 20171031, end: 20171101
  5. METRONIDAZOLE INJECTION USP (5 MG/ML) IN PAB? PLASTIC CONTAINER [Suspect]
     Active Substance: METRONIDAZOLE
     Indication: ANTIBIOTIC PROPHYLAXIS
     Route: 042
  6. DAFALGAN CODEINE [Suspect]
     Active Substance: ACETAMINOPHEN\CODEINE PHOSPHATE
     Route: 048
     Dates: start: 20171101, end: 20171101
  7. LOVENOX [Suspect]
     Active Substance: ENOXAPARIN SODIUM
     Dates: start: 20171031, end: 20171101
  8. MORPHINE [Suspect]
     Active Substance: MORPHINE
     Route: 042
     Dates: start: 20171031, end: 20171101
  9. DROPERIDOL. [Suspect]
     Active Substance: DROPERIDOL
     Route: 042
     Dates: start: 20171031, end: 20171102
  10. POLARAMINE [Suspect]
     Active Substance: DEXCHLORPHENIRAMINE MALEATE
     Route: 042
     Dates: start: 20171102, end: 20171102
  11. BRIDION [Suspect]
     Active Substance: SUGAMMADEX
     Route: 042
     Dates: start: 20171031, end: 20171102

REACTIONS (1)
  - Drug reaction with eosinophilia and systemic symptoms [Recovered/Resolved]

NARRATIVE: CASE EVENT DATE: 20171031
